FAERS Safety Report 26064923 (Version 2)
Quarter: 2025Q4

REPORT INFORMATION
  Report Type: Spontaneous
  Country: KW (occurrence: KW)
  Receive Date: 20251119
  Receipt Date: 20251217
  Transmission Date: 20260118
  Serious: Yes (Hospitalization, Other)
  Sender: PFIZER
  Company Number: KW-PFIZER INC-PV202500133488

PATIENT
  Age: 46 Year
  Sex: Female

DRUGS (1)
  1. ZIRABEV [Suspect]
     Active Substance: BEVACIZUMAB-BVZR
     Indication: Colon cancer metastatic
     Dosage: 300 MG EVERY 2 WEEKS
     Route: 042
     Dates: end: 20250922

REACTIONS (3)
  - Colostomy [Unknown]
  - Spinal operation [Unknown]
  - Full blood count decreased [Unknown]

NARRATIVE: CASE EVENT DATE: 20251019
